FAERS Safety Report 4514018-1 (Version None)
Quarter: 2004Q4

REPORT INFORMATION
  Report Type: 
  Country: None (occurrence: None)
  Receive Date: 20041124
  Receipt Date: 20041116
  Transmission Date: 20050328
  Serious: Yes (Life-Threatening, Hospitalization, Disabling)
  Sender: FDA-Public Use
  Company Number: HQWYE490817NOV04

PATIENT
  Age: 23 Year
  Sex: Female

DRUGS (3)
  1. EFFEXOR XR [Suspect]
     Indication: DEPRESSION
     Dosage: 100 CAPSULES (1500 MG, OVERDOSE AMOUNT), ORAL
     Route: 048
  2. YASMIN [Concomitant]
  3. TRILEPTAL [Concomitant]

REACTIONS (6)
  - ACUTE RESPIRATORY DISTRESS SYNDROME [None]
  - AMNESIA [None]
  - ASTHENIA [None]
  - CHEST PAIN [None]
  - INTENTIONAL OVERDOSE [None]
  - SUICIDE ATTEMPT [None]
